FAERS Safety Report 23137092 (Version 3)
Quarter: 2023Q4

REPORT INFORMATION
  Report Type: Spontaneous
  Country: US (occurrence: US)
  Receive Date: 20231102
  Receipt Date: 20231120
  Transmission Date: 20240109
  Serious: Yes (Hospitalization)
  Sender: FDA-Public Use
  Company Number: US-002147023-NVSC2023US231985

PATIENT
  Age: 0 Year
  Sex: Male
  Weight: 3.98 kg

DRUGS (3)
  1. ZOLGENSMA [Suspect]
     Active Substance: ONASEMNOGENE ABEPARVOVEC-XIOI
     Indication: Spinal muscular atrophy
     Dosage: UNK UNK, ONCE/SINGLE
     Route: 042
     Dates: start: 20231017, end: 20231017
  2. PREDNISOLONE [Concomitant]
     Active Substance: PREDNISOLONE
     Indication: In vivo gene therapy
     Dosage: 1 MG/KG, QD (MG/KG/DAY)
     Route: 048
     Dates: start: 20231016
  3. FAMOTIDINE [Concomitant]
     Active Substance: FAMOTIDINE
     Indication: Gastrointestinal disorder prophylaxis
     Dosage: 0.5 MG/KG, QD (MG/KG/DAY)
     Route: 048
     Dates: start: 20231016

REACTIONS (4)
  - Brain natriuretic peptide increased [Recovered/Resolved]
  - Troponin I increased [Recovering/Resolving]
  - Brain natriuretic peptide increased [Recovered/Resolved]
  - Troponin I increased [Recovered/Resolved]

NARRATIVE: CASE EVENT DATE: 20231019
